FAERS Safety Report 8489758-2 (Version None)
Quarter: 2012Q3

REPORT INFORMATION
  Report Type: 
  Country: None (occurrence: None)
  Receive Date: 20120705
  Receipt Date: 20120626
  Transmission Date: 20120928
  Serious: Yes (Hospitalization)
  Sender: FDA-Public Use
  Company Number: JP-VERTEX PHARMACEUTICALS INC.-AE-2012-009616

PATIENT
  Age: 61 Year
  Sex: Female

DRUGS (9)
  1. PEGINTERFERON ALFA-2B [Concomitant]
     Dates: start: 20120411, end: 20120606
  2. NORVASC [Concomitant]
     Route: 048
  3. TELAVIC (TELAPREVIR) [Suspect]
     Indication: HEPATITIS C
     Route: 048
     Dates: start: 20120411, end: 20120606
  4. TELAVIC (TELAPREVIR) [Suspect]
     Route: 048
     Dates: start: 20120613
  5. CANDESARTAN CILEXETIL [Concomitant]
     Route: 048
  6. PEGINTERFERON ALFA-2B [Concomitant]
     Dates: start: 20120613
  7. RIBAVIRIN [Concomitant]
     Route: 048
     Dates: start: 20120523, end: 20120606
  8. RIBAVIRIN [Concomitant]
     Indication: HEPATITIS C
     Route: 048
     Dates: start: 20120411, end: 20120522
  9. ALLEGRA [Concomitant]
     Route: 048

REACTIONS (1)
  - PYELONEPHRITIS ACUTE [None]
